FAERS Safety Report 5504367-2 (Version None)
Quarter: 2007Q4

REPORT INFORMATION
  Report Type: 
  Country: None (occurrence: None)
  Receive Date: 20071101
  Receipt Date: 20071022
  Transmission Date: 20080405
  Serious: Yes (Other)
  Sender: FDA-Public Use
  Company Number: AR-PFIZER INC-2007068342

PATIENT
  Sex: Male
  Weight: 98 kg

DRUGS (3)
  1. LIPITOR [Suspect]
     Indication: CARDIAC DISORDER
     Route: 048
     Dates: start: 20060621, end: 20070501
  2. ENALAPRIL MALEATE [Concomitant]
     Route: 048
  3. CARVEDILOL [Concomitant]
     Route: 048

REACTIONS (2)
  - TENDON RUPTURE [None]
  - TENDONITIS [None]
